FAERS Safety Report 13192264 (Version 1)
Quarter: 2017Q1

REPORT INFORMATION
  Report Type: Report from Study
  Country: US (occurrence: US)
  Receive Date: 20170207
  Receipt Date: 20170207
  Transmission Date: 20170428
  Serious: Yes (Hospitalization, Other)
  Sender: FDA-Public Use
  Company Number: US-GILEAD-2016-0248483

PATIENT
  Age: 44 Year
  Sex: Female

DRUGS (5)
  1. SERTRALINE [Concomitant]
     Active Substance: SERTRALINE HYDROCHLORIDE
  2. AMBRISENTAN [Suspect]
     Active Substance: AMBRISENTAN
     Indication: PULMONARY HYPERTENSION
     Dosage: 5 MG, QD
     Route: 065
     Dates: start: 20150208
  3. ADCIRCA [Concomitant]
     Active Substance: TADALAFIL
  4. TORSEMIDE. [Concomitant]
     Active Substance: TORSEMIDE
  5. SPIRONOLACTONE. [Concomitant]
     Active Substance: SPIRONOLACTONE

REACTIONS (7)
  - Pulmonary arterial hypertension [Not Recovered/Not Resolved]
  - Fluid overload [Recovered/Resolved]
  - Dyspnoea [Not Recovered/Not Resolved]
  - Drug dose omission [Recovered/Resolved]
  - Fluid retention [Recovered/Resolved]
  - Product use issue [Not Recovered/Not Resolved]
  - Abasia [Recovering/Resolving]

NARRATIVE: CASE EVENT DATE: 20161123
